FAERS Safety Report 12173169 (Version 1)
Quarter: 2016Q1

REPORT INFORMATION
  Report Type: Spontaneous
  Country: US (occurrence: US)
  Receive Date: 20160311
  Receipt Date: 20160311
  Transmission Date: 20160526
  Serious: Yes (Life-Threatening, Hospitalization)
  Sender: FDA-Public Use
  Company Number: US-PFIZER INC-2016145672

PATIENT
  Age: 55 Year
  Sex: Male
  Weight: 66.67 kg

DRUGS (2)
  1. OXYTETRACYCLINE HCL [Suspect]
     Active Substance: OXYTETRACYCLINE HYDROCHLORIDE
     Indication: NEURODERMATITIS
     Dosage: UNK
     Route: 061
     Dates: start: 195103
  2. TERRAMYCIN [Suspect]
     Active Substance: OXYTETRACYCLINE\OXYTETRACYCLINE HYDROCHLORIDE
     Dosage: 250 MG, OVER A 24-HOUR PERIOD
     Dates: start: 195103

REACTIONS (4)
  - Drug eruption [Recovered/Resolved with Sequelae]
  - Albuminuria [Recovered/Resolved with Sequelae]
  - Dyspnoea [Recovered/Resolved with Sequelae]
  - Oedema [Recovered/Resolved with Sequelae]
